FAERS Safety Report 5926740-0 (Version None)
Quarter: 2008Q4

REPORT INFORMATION
  Report Type: 
  Country: None (occurrence: None)
  Receive Date: 20081022
  Receipt Date: 20081013
  Transmission Date: 20090506
  Serious: Yes (Death)
  Sender: FDA-Public Use
  Company Number: US-JNJFOC-20081003391

PATIENT
  Sex: Female
  Weight: 142.88 kg

DRUGS (7)
  1. ORTHO EVRA [Suspect]
     Indication: CONTRACEPTION
     Route: 062
  2. ORTHO TRI-CYCLEN [Suspect]
     Indication: CONTRACEPTION
     Route: 048
  3. CLONAZEPAM [Concomitant]
     Indication: EPILEPSY
  4. DEPAKOTE [Concomitant]
     Indication: EPILEPSY
  5. LAMICTAL [Concomitant]
     Indication: EPILEPSY
  6. PERCOCET [Concomitant]
     Indication: BACK PAIN
  7. VASOTEC [Concomitant]
     Indication: HYPERTENSION

REACTIONS (2)
  - DEEP VEIN THROMBOSIS [None]
  - PULMONARY EMBOLISM [None]
